FAERS Safety Report 23138935 (Version 4)
Quarter: 2024Q2

REPORT INFORMATION
  Report Type: Spontaneous
  Country: JP (occurrence: JP)
  Receive Date: 20231102
  Receipt Date: 20240627
  Transmission Date: 20240716
  Serious: Yes (Hospitalization, Other)
  Sender: FDA-Public Use
  Company Number: JP-ORG100014127-2023001041

PATIENT
  Age: 52 Year
  Sex: Male
  Weight: 93.6 kg

DRUGS (2)
  1. METYRAPONE [Suspect]
     Active Substance: METYRAPONE
     Indication: Cushing^s syndrome
     Dates: start: 202109
  2. METYRAPONE [Suspect]
     Active Substance: METYRAPONE
     Indication: Cushing^s syndrome

REACTIONS (2)
  - Hypokalaemia [Recovered/Resolved]
  - 11-deoxycorticosterone increased [Unknown]

NARRATIVE: CASE EVENT DATE: 20210901
